FAERS Safety Report 18959756 (Version 7)
Quarter: 2024Q1

REPORT INFORMATION
  Report Type: Report from Study
  Country: JP (occurrence: JP)
  Receive Date: 20210302
  Receipt Date: 20240116
  Transmission Date: 20240410
  Serious: Yes (Hospitalization)
  Sender: FDA-Public Use
  Company Number: JP-BIOGEN-2021BI00984200

PATIENT
  Age: 3 Year
  Sex: Female
  Weight: 11.9 kg

DRUGS (9)
  1. SPINRAZA [Suspect]
     Active Substance: NUSINERSEN
     Indication: Spinal muscular atrophy
     Route: 050
     Dates: start: 20200414
  2. XYLOCAINE [Concomitant]
     Active Substance: LIDOCAINE HYDROCHLORIDE
     Indication: Anaesthesia procedure
     Route: 050
     Dates: start: 20200414
  3. VIMPAT [Concomitant]
     Active Substance: LACOSAMIDE
     Indication: Epilepsy
     Route: 050
  4. VIMPAT [Concomitant]
     Active Substance: LACOSAMIDE
     Dosage: TOTAL DAILY DOSE: 60-90 MG
     Route: 050
  5. VIMPAT [Concomitant]
     Active Substance: LACOSAMIDE
     Route: 050
  6. MYSTAN [Concomitant]
     Active Substance: CLOBAZAM
     Indication: Epilepsy
     Route: 050
  7. MYSTAN [Concomitant]
     Active Substance: CLOBAZAM
     Route: 050
  8. PHENOBARBITAL SODIUM [Concomitant]
     Active Substance: PHENOBARBITAL SODIUM
     Indication: Epilepsy
     Dosage: 120
     Route: 050
  9. WAKOBITAL [Concomitant]
     Indication: Epilepsy
     Route: 050

REACTIONS (3)
  - Status epilepticus [Recovered/Resolved]
  - Epilepsy [Recovered/Resolved]
  - Calculus urinary [Recovered/Resolved]

NARRATIVE: CASE EVENT DATE: 20200723
